FAERS Safety Report 6828098-1 (Version None)
Quarter: 2010Q3

REPORT INFORMATION
  Report Type: 
  Country: None (occurrence: None)
  Receive Date: 20100709
  Receipt Date: 20070129
  Transmission Date: 20110219
  Serious: No
  Sender: FDA-Public Use
  Company Number: US-PFIZER INC-2007008809

PATIENT
  Sex: Female
  Weight: 61.23 kg

DRUGS (6)
  1. CHANTIX [Suspect]
     Indication: SMOKING CESSATION THERAPY
     Dates: start: 20070115
  2. HYDROCHLOROTHIAZIDE [Concomitant]
  3. VALSARTAN [Concomitant]
  4. FOSAMAX [Concomitant]
  5. ZOCOR [Concomitant]
  6. TRICOR [Concomitant]

REACTIONS (1)
  - SLEEP DISORDER [None]
